FAERS Safety Report 13461248 (Version 14)
Quarter: 2018Q4

REPORT INFORMATION
  Report Type: Spontaneous
  Country: US (occurrence: US)
  Receive Date: 20170420
  Receipt Date: 20181030
  Transmission Date: 20190204
  Serious: Yes (Other)
  Sender: FDA-Public Use
  Company Number: US-ACORDA-ACO_136558_2017

PATIENT
  Age: 65 Year
  Sex: Female
  Weight: 86.62 kg

DRUGS (42)
  1. AMPYRA [Suspect]
     Active Substance: DALFAMPRIDINE
     Indication: MULTIPLE SCLEROSIS
  2. ZANAFLEX [Suspect]
     Active Substance: TIZANIDINE HYDROCHLORIDE
     Dosage: 6MG, UNK
     Route: 048
  3. FUROSEMIDE. [Concomitant]
     Active Substance: FUROSEMIDE
     Indication: PRODUCT USED FOR UNKNOWN INDICATION
     Dosage: 40 MG, QD (EVERY MORNING)
     Route: 048
  4. FUROSEMIDE. [Concomitant]
     Active Substance: FUROSEMIDE
     Indication: PRODUCT USED FOR UNKNOWN INDICATION
     Dosage: 20 MG, QD (IN THE AFTERNOON)
     Route: 048
  5. AMITRIPTYLINE HCL [Concomitant]
     Active Substance: AMITRIPTYLINE
     Indication: PRODUCT USED FOR UNKNOWN INDICATION
     Dosage: 50 MG, QD (AT BEDTIME)
     Route: 048
  6. FOSAMAX [Concomitant]
     Active Substance: ALENDRONATE SODIUM
     Indication: PRODUCT USED FOR UNKNOWN INDICATION
     Dosage: 70 MG, UNK
     Route: 048
  7. TYSABRI [Suspect]
     Active Substance: NATALIZUMAB
     Indication: MULTIPLE SCLEROSIS
     Dosage: 300 MG/15 ML EVERY 6 WEEKS
     Route: 042
     Dates: start: 20080925
  8. ETODOLAC. [Concomitant]
     Active Substance: ETODOLAC
     Indication: PRODUCT USED FOR UNKNOWN INDICATION
     Dosage: 500 MG, BID
     Route: 048
  9. JANUVIA [Concomitant]
     Active Substance: SITAGLIPTIN PHOSPHATE
     Indication: BLOOD GLUCOSE ABNORMAL
     Dosage: 100 MG, QD
     Route: 048
  10. HYDROXYZINE HCL [Concomitant]
     Active Substance: HYDROXYZINE HYDROCHLORIDE
     Indication: PRURITUS
     Dosage: 25 MG, QID
     Route: 048
  11. HYDROCODONE/ACETAMINOPHEN [Concomitant]
     Active Substance: ACETAMINOPHEN\HYDROCODONE
     Indication: PAIN
     Dosage: 5-325 MG AT BEDTIME AS NEEDED
     Route: 065
  12. ALENDRONATE SODIUM. [Concomitant]
     Active Substance: ALENDRONATE SODIUM
     Indication: PRODUCT USED FOR UNKNOWN INDICATION
     Dosage: 70 MG, WEEKLY
     Route: 048
  13. XOPENEX [Concomitant]
     Active Substance: LEVALBUTEROL HYDROCHLORIDE
     Indication: COUGH
     Dosage: 1.25 MG/3 ML QID, PRN
     Route: 065
  14. FLUTICASONE PROPIONATE. [Concomitant]
     Active Substance: FLUTICASONE PROPIONATE
     Indication: PRODUCT USED FOR UNKNOWN INDICATION
     Dosage: 50 MCG/ACT 2 SPRAYS IN EACH NOSTRIL EVERYDAY
  15. BENZONATATE. [Concomitant]
     Active Substance: BENZONATATE
     Indication: PRODUCT USED FOR UNKNOWN INDICATION
     Dosage: 100 MG, TID
     Route: 048
  16. GABAPENTIN. [Concomitant]
     Active Substance: GABAPENTIN
     Indication: PRODUCT USED FOR UNKNOWN INDICATION
     Dosage: 200 MG, TID
     Route: 048
  17. AMITIZA [Concomitant]
     Active Substance: LUBIPROSTONE
     Indication: PRODUCT USED FOR UNKNOWN INDICATION
     Dosage: 24 ??G, BID
     Route: 048
  18. POTASSIUM CHLORIDE. [Concomitant]
     Active Substance: POTASSIUM CHLORIDE
     Indication: PRODUCT USED FOR UNKNOWN INDICATION
     Dosage: 10 MEQ, QD
     Route: 048
  19. BACLOFEN. [Concomitant]
     Active Substance: BACLOFEN
     Indication: PRODUCT USED FOR UNKNOWN INDICATION
     Dosage: 20 MG, QID
     Route: 048
  20. GABAPENTIN. [Concomitant]
     Active Substance: GABAPENTIN
     Indication: PRODUCT USED FOR UNKNOWN INDICATION
     Dosage: 600 MG, QD (AT BEDTIME)
     Route: 048
  21. LACTULOSE. [Concomitant]
     Active Substance: LACTULOSE
     Indication: PRODUCT USED FOR UNKNOWN INDICATION
     Dosage: 10 GM/15 ML (1 TABLESPOON 2X A DAY)
     Route: 065
  22. DIPHENOXYLATE HYDROCHLORIDE AND ATROPINE SULFATE [Concomitant]
     Active Substance: ATROPINE SULFATE\DIPHENOXYLATE HYDROCHLORIDE
     Indication: DIARRHOEA
     Dosage: 2.5-0.025MG, 1-2 Q6-8H PRN
     Route: 065
  23. ZANAFLEX [Suspect]
     Active Substance: TIZANIDINE HYDROCHLORIDE
     Indication: PRODUCT USED FOR UNKNOWN INDICATION
     Dosage: 1.5 TAB 3X DAILY AND 2.5 TABS AT BEDTIME
     Route: 048
     Dates: start: 201112
  24. MAGIC SWIZZLE [Concomitant]
     Indication: PRODUCT USED FOR UNKNOWN INDICATION
     Dosage: 5 ML EVERY 4-6 HOURS AS NEEDED
     Route: 065
  25. OXYBUTYNIN. [Concomitant]
     Active Substance: OXYBUTYNIN CHLORIDE
     Indication: BLADDER DISORDER
     Dosage: 3.9 MG/24 HR
     Route: 065
  26. TRIAMCINOLONE ACETONIDE. [Concomitant]
     Active Substance: TRIAMCINOLONE ACETONIDE
     Indication: URETHRITIS NONINFECTIVE
     Dosage: 0.1 % CREAM, APPLY TO SKIN TWICE A DAY
     Route: 065
  27. DIAZEPAM. [Concomitant]
     Active Substance: DIAZEPAM
     Indication: PRODUCT USED FOR UNKNOWN INDICATION
     Dosage: 1 TAB 3X A DAY, 4 TABLETS AT BEDTIME)
     Route: 048
  28. OMEPRAZOLE. [Concomitant]
     Active Substance: OMEPRAZOLE
     Indication: PRODUCT USED FOR UNKNOWN INDICATION
     Dosage: 20 MG, BID (1 CAPSULE HALF AN HOUR BEFORE BREAKFAST, AND 1 HALF AN HOUR BEFORE BEDTIME)
     Route: 048
  29. HYOSCYAMINE SULFATE. [Concomitant]
     Active Substance: HYOSCYAMINE SULFATE
     Indication: PRODUCT USED FOR UNKNOWN INDICATION
     Dosage: 0.125 MG AS NEEDED
     Route: 065
  30. OCUVITE [Concomitant]
     Active Substance: VITAMINS
     Indication: PRODUCT USED FOR UNKNOWN INDICATION
     Dosage: TWICE DAILY
     Route: 048
  31. AMBIEN [Concomitant]
     Active Substance: ZOLPIDEM TARTRATE
     Indication: PRODUCT USED FOR UNKNOWN INDICATION
     Dosage: 10 MG, QD (AT BEDTIME AS NEEDED)
     Route: 048
  32. TRAMADOL HCL [Concomitant]
     Active Substance: TRAMADOL HYDROCHLORIDE
     Indication: PRODUCT USED FOR UNKNOWN INDICATION
     Dosage: 50 MG, QID (PRN)
     Route: 048
  33. AMPYRA [Suspect]
     Active Substance: DALFAMPRIDINE
     Indication: GAIT DISTURBANCE
     Dosage: 10 MG, BID (Q 12 HOUR)
     Route: 048
     Dates: start: 2013
  34. TYSABRI [Suspect]
     Active Substance: NATALIZUMAB
     Dosage: 300 MG INFUSED OVER 1 HOUR, 1 FOR 4 WEEK
     Route: 042
  35. MYRBETRIQ [Concomitant]
     Active Substance: MIRABEGRON
     Indication: PRODUCT USED FOR UNKNOWN INDICATION
     Dosage: 25 MG, QD
     Route: 048
  36. RESTASIS [Concomitant]
     Active Substance: CYCLOSPORINE
     Indication: PRODUCT USED FOR UNKNOWN INDICATION
     Dosage: 0.05 % EMUL TWICE A DAY
     Route: 065
  37. KLOR-CON M10 [Concomitant]
     Active Substance: POTASSIUM CHLORIDE
     Indication: PRODUCT USED FOR UNKNOWN INDICATION
     Dosage: 10 MEQ, QD
     Route: 065
  38. VITAMIN D3 [Concomitant]
     Active Substance: CHOLECALCIFEROL
     Indication: PRODUCT USED FOR UNKNOWN INDICATION
     Dosage: 2000 IU, TID
     Route: 065
  39. VITAMIN B12 [Concomitant]
     Active Substance: CYANOCOBALAMIN
     Indication: PRODUCT USED FOR UNKNOWN INDICATION
     Dosage: 1000 ??G, QD
     Route: 048
  40. DICLOFENAC [Concomitant]
     Active Substance: DICLOFENAC
     Indication: PRODUCT USED FOR UNKNOWN INDICATION
     Route: 065
  41. ZANAFLEX [Suspect]
     Active Substance: TIZANIDINE HYDROCHLORIDE
     Dosage: 2MG, UNK
     Route: 048
  42. MACRODANTIN [Concomitant]
     Active Substance: NITROFURANTOIN
     Indication: PRODUCT USED FOR UNKNOWN INDICATION
     Dosage: 50 MG, QD
     Route: 048

REACTIONS (79)
  - Tremor [Unknown]
  - Diplopia [Unknown]
  - Peripheral coldness [Unknown]
  - Ataxia [Unknown]
  - Dry mouth [Unknown]
  - Goitre [Not Recovered/Not Resolved]
  - Insomnia [Not Recovered/Not Resolved]
  - Cataract [Recovered/Resolved]
  - Renal atrophy [Unknown]
  - Joint stiffness [Unknown]
  - Dysstasia [Unknown]
  - Asthenia [Not Recovered/Not Resolved]
  - Back pain [Unknown]
  - Breast cancer [Unknown]
  - Hepatic steatosis [Unknown]
  - Temperature intolerance [Unknown]
  - Chronic sinusitis [Unknown]
  - Nail dystrophy [Not Recovered/Not Resolved]
  - Stomatitis [Unknown]
  - Cough [Unknown]
  - Wheezing [Unknown]
  - Urinary incontinence [Unknown]
  - Muscle spasms [Unknown]
  - Dry skin [Unknown]
  - Hypotonia [Unknown]
  - Dysphonia [Unknown]
  - Hypercalcaemia [Not Recovered/Not Resolved]
  - Ear disorder [Unknown]
  - Acrochordon [Unknown]
  - Multiple sclerosis relapse [Unknown]
  - Urinary tract infection [Not Recovered/Not Resolved]
  - Opportunistic infection [Unknown]
  - Hypoaesthesia [Unknown]
  - Endoscopy [Unknown]
  - Peripheral swelling [Unknown]
  - Joint range of motion decreased [Unknown]
  - Movement disorder [Unknown]
  - Haemorrhoids [Unknown]
  - Micturition urgency [Unknown]
  - Hyperparathyroidism primary [Not Recovered/Not Resolved]
  - Age-related macular degeneration [Not Recovered/Not Resolved]
  - Ill-defined disorder [Unknown]
  - Loss of personal independence in daily activities [Unknown]
  - Joint swelling [Unknown]
  - Myalgia [Unknown]
  - Depression [Unknown]
  - Sensory loss [Unknown]
  - Rash [Unknown]
  - Ear pain [Unknown]
  - Lacrimation decreased [Not Recovered/Not Resolved]
  - Confusional state [Unknown]
  - Hyponatraemia [Unknown]
  - Neoplasm malignant [Unknown]
  - Arthralgia [Unknown]
  - Dysmetria [Unknown]
  - Odynophagia [Unknown]
  - Oesophageal stenosis [Unknown]
  - Osteopenia [Not Recovered/Not Resolved]
  - Balance disorder [Unknown]
  - Asthenia [Recovering/Resolving]
  - Renal failure [Not Recovered/Not Resolved]
  - Somnolence [Unknown]
  - Vision blurred [Unknown]
  - Pollakiuria [Unknown]
  - Nocturia [Unknown]
  - Asthma [Unknown]
  - Intraocular lens implant [Not Recovered/Not Resolved]
  - Paraesthesia [Unknown]
  - Headache [Unknown]
  - Invasive ductal breast carcinoma [Unknown]
  - Lymphadenopathy [Unknown]
  - Muscular weakness [Unknown]
  - Pruritus [Unknown]
  - Mood swings [Unknown]
  - Arthritis [Unknown]
  - Bronchitis [Unknown]
  - Fatigue [Recovering/Resolving]
  - Dizziness [Unknown]
  - Constipation [Unknown]

NARRATIVE: CASE EVENT DATE: 20130408
